FAERS Safety Report 7788439-8 (Version None)
Quarter: 2011Q3

REPORT INFORMATION
  Report Type: 
  Country: None (occurrence: None)
  Receive Date: 20110927
  Receipt Date: 20110919
  Transmission Date: 20111222
  Serious: Yes (Hospitalization, Other)
  Sender: FDA-Public Use
  Company Number: 2010SP064697

PATIENT
  Age: 20 Year
  Sex: Female
  Weight: 103.4201 kg

DRUGS (3)
  1. VITAMIN TAB [Concomitant]
  2. NUVARING [Suspect]
     Indication: MENSTRUATION IRREGULAR
     Dates: start: 20031106, end: 20081217
  3. NUVARING [Suspect]
     Indication: CONTRACEPTION
     Dates: start: 20031106, end: 20081217

REACTIONS (49)
  - CHLAMYDIAL INFECTION [None]
  - NASOPHARYNGITIS [None]
  - AGITATION [None]
  - ROAD TRAFFIC ACCIDENT [None]
  - PATELLOFEMORAL PAIN SYNDROME [None]
  - PULMONARY NECROSIS [None]
  - PAIN [None]
  - ACQUIRED DIAPHRAGMATIC EVENTRATION [None]
  - URINARY TRACT INFECTION [None]
  - MUSCLE SPASMS [None]
  - UPPER LIMB FRACTURE [None]
  - LUNG INFILTRATION [None]
  - TENDONITIS [None]
  - OBESITY [None]
  - ACNE [None]
  - PULMONARY INFARCTION [None]
  - LEUKOCYTOSIS [None]
  - PULMONARY EMBOLISM [None]
  - VOMITING [None]
  - BACK PAIN [None]
  - PAIN IN EXTREMITY [None]
  - ECCHYMOSIS [None]
  - MULTIPLE INJURIES [None]
  - LACERATION [None]
  - SINUS TACHYCARDIA [None]
  - AGGRESSION [None]
  - LIPOMA [None]
  - TENDON DISORDER [None]
  - POLYCYSTIC OVARIES [None]
  - STRESS [None]
  - WHITE BLOOD CELL COUNT INCREASED [None]
  - FIBRIN D DIMER INCREASED [None]
  - DYSPNOEA [None]
  - JOINT EFFUSION [None]
  - CHEST PAIN [None]
  - PLATELET COUNT INCREASED [None]
  - POST PROCEDURAL HAEMORRHAGE [None]
  - CONCUSSION [None]
  - PHARYNGITIS STREPTOCOCCAL [None]
  - ATELECTASIS [None]
  - HYPERCOAGULATION [None]
  - PLEURAL EFFUSION [None]
  - HIRSUTISM [None]
  - HORMONE LEVEL ABNORMAL [None]
  - UPPER RESPIRATORY TRACT INFECTION [None]
  - MUSCLE STRAIN [None]
  - ANXIETY [None]
  - FOREIGN BODY [None]
  - MUSCULOSKELETAL PAIN [None]
